FAERS Safety Report 9013786 (Version 1)
Quarter: 2013Q1

REPORT INFORMATION
  Report Type: Spontaneous
  Country: US (occurrence: None)
  Receive Date: 20130108
  Receipt Date: 20130108
  Transmission Date: 20140127
  Serious: No
  Sender: FDA-Public Use
  Company Number: None

PATIENT
  Sex: Female
  Weight: 139.71 kg

DRUGS (1)
  1. LOSARTAN/HCTZ 100/25 [Suspect]
     Dosage: 1 PO DAILY
     Route: 048
     Dates: start: 20110606, end: 20110612

REACTIONS (2)
  - Angioedema [None]
  - Renal impairment [None]
